FAERS Safety Report 10769395 (Version 1)
Quarter: 2015Q1

REPORT INFORMATION
  Report Type: Spontaneous
  Country: IN (occurrence: None)
  Receive Date: 20150204
  Receipt Date: 20150204
  Transmission Date: 20150721
  Serious: Yes (Hospitalization)
  Sender: FDA-Public Use
  Company Number: UCM201501-000060

PATIENT
  Age: 50 Year
  Sex: Female

DRUGS (1)
  1. HYDROCHLOROTHIAZIDE (HYDROCHLOROTHIAZIDE) (HYDROCHLOROTHIAZIDE) [Suspect]
     Active Substance: HYDROCHLOROTHIAZIDE
     Indication: HYPERTENSION

REACTIONS (6)
  - Gait disturbance [None]
  - Hyponatraemia [None]
  - Metabolic encephalopathy [None]
  - Tremor [None]
  - Demyelination [None]
  - Muscle rigidity [None]
